FAERS Safety Report 25740468 (Version 1)
Quarter: 2025Q3

REPORT INFORMATION
  Report Type: Spontaneous
  Country: US (occurrence: None)
  Receive Date: 20250828
  Receipt Date: 20250828
  Transmission Date: 20251021
  Serious: Yes (Life-Threatening)
  Sender: FDA-CTU
  Company Number: None

PATIENT
  Age: 77 Year
  Sex: Male
  Weight: 60.8 kg

DRUGS (3)
  1. LACOSAMIDE [Suspect]
     Active Substance: LACOSAMIDE
     Indication: Status epilepticus
     Dosage: FREQUENCY : TWICE A DAY;?
     Route: 042
     Dates: start: 20250713, end: 20250717
  2. KEPPRA [Concomitant]
     Active Substance: LEVETIRACETAM
     Dates: start: 20250713, end: 20250728
  3. VALPROATE [Concomitant]
     Active Substance: VALPROIC ACID
     Dates: start: 20250714, end: 20250727

REACTIONS (2)
  - Bradycardia [None]
  - Cardiac arrest [None]

NARRATIVE: CASE EVENT DATE: 20250717
